FAERS Safety Report 8432303-8 (Version None)
Quarter: 2012Q2

REPORT INFORMATION
  Report Type: 
  Country: None (occurrence: None)
  Receive Date: 20120613
  Receipt Date: 20120608
  Transmission Date: 20120825
  Serious: Yes (Hospitalization, Other)
  Sender: FDA-Public Use
  Company Number: PHHY2012BR049968

PATIENT
  Sex: Female

DRUGS (2)
  1. EXELON [Suspect]
     Dosage: 6 MG, UNK
  2. MEMANTINE HCL [Concomitant]
     Dosage: 10 MG, UNK

REACTIONS (2)
  - INFARCTION [None]
  - INFECTION [None]
